FAERS Safety Report 16972782 (Version 1)
Quarter: 2019Q4

REPORT INFORMATION
  Report Type: Spontaneous
  Country: PT (occurrence: PT)
  Receive Date: 20191030
  Receipt Date: 20191030
  Transmission Date: 20200122
  Serious: Yes (Hospitalization, Other)
  Sender: FDA-Public Use
  Company Number: PT-AMGEN-PRTSP2019175743

PATIENT
  Age: 25 Year
  Sex: Female

DRUGS (1)
  1. ADALIMUMAB [Suspect]
     Active Substance: ADALIMUMAB
     Indication: BEHCET^S SYNDROME
     Dosage: UNK
     Route: 065

REACTIONS (6)
  - Parathyroid tumour benign [Unknown]
  - Off label use [Unknown]
  - Hyperparathyroidism primary [Unknown]
  - Nodule [Unknown]
  - Hypercalcaemia [Unknown]
  - Arthralgia [Unknown]
